FAERS Safety Report 5367361-0 (Version None)
Quarter: 2007Q2

REPORT INFORMATION
  Report Type: 
  Country: None (occurrence: None)
  Receive Date: 20070622
  Receipt Date: 20060804
  Transmission Date: 20071010
  Serious: No
  Sender: FDA-Public Use
  Company Number: US-ASTRAZENECA-2006UW15665

PATIENT
  Age: 8 Month
  Sex: Male
  Weight: 9.5 kg

DRUGS (3)
  1. PULMICORT RESPULES [Suspect]
     Indication: ASTHMA
     Dosage: 0.5 MG
     Route: 055
     Dates: start: 20060804
  2. XOPENEX [Concomitant]
  3. OMEPRAZOLE [Concomitant]

REACTIONS (1)
  - PSYCHOMOTOR HYPERACTIVITY [None]
